FAERS Safety Report 4760250-1 (Version None)
Quarter: 2005Q3

REPORT INFORMATION
  Report Type: 
  Country: None (occurrence: None)
  Receive Date: 20050831
  Receipt Date: 20050817
  Transmission Date: 20060218
  Serious: Yes (Death, Other)
  Sender: FDA-Public Use
  Company Number: USA0508105719

PATIENT
  Age: 65 Year
  Sex: Female

DRUGS (1)
  1. INSULIN-INSULIN-ANIMAL (UNKNOWN FORMULATION) (INSUL [Suspect]
     Indication: DIABETES MELLITUS

REACTIONS (1)
  - CARDIAC FAILURE CONGESTIVE [None]
